FAERS Safety Report 6505133-1 (Version None)
Quarter: 2009Q4

REPORT INFORMATION
  Report Type: 
  Country: None (occurrence: None)
  Receive Date: 20091218
  Receipt Date: 20091209
  Transmission Date: 20100525
  Serious: Yes (Hospitalization, Other)
  Sender: FDA-Public Use
  Company Number: PHEH2009US16509

PATIENT
  Sex: Female
  Weight: 64.5 kg

DRUGS (10)
  1. TASIGNA [Suspect]
     Indication: CHRONIC MYELOID LEUKAEMIA
     Dosage: 400 MG, BID
     Route: 048
     Dates: start: 20091020, end: 20091029
  2. GLEEVEC [Suspect]
  3. AMLODIPINE [Concomitant]
  4. ASPIRIN [Concomitant]
  5. ATENOLOL [Concomitant]
  6. DIOVAN [Concomitant]
  7. CITALOPRAM HYDROBROMIDE [Concomitant]
  8. PLAVIX [Concomitant]
  9. POTASSIUM [Concomitant]
  10. LASIX [Concomitant]
     Dosage: PRN

REACTIONS (5)
  - HYPERTENSION [None]
  - MYOCARDIAL INFARCTION [None]
  - PLEURAL EFFUSION [None]
  - PNEUMONIA [None]
  - PULMONARY OEDEMA [None]
